FAERS Safety Report 5798184-6 (Version None)
Quarter: 2008Q3

REPORT INFORMATION
  Report Type: 
  Country: None (occurrence: None)
  Receive Date: 20080702
  Receipt Date: 20080626
  Transmission Date: 20090109
  Serious: Yes (Other)
  Sender: FDA-Public Use
  Company Number: A0734991A

PATIENT
  Age: 54 Year
  Sex: Female

DRUGS (1)
  1. PAXIL CR [Suspect]
     Indication: MENOPAUSAL SYMPTOMS
     Dosage: 12.5MG PER DAY
     Route: 048
     Dates: start: 20010101, end: 20080601

REACTIONS (9)
  - AGGRESSION [None]
  - AGITATION [None]
  - CRYING [None]
  - DEPERSONALISATION [None]
  - DEPRESSION [None]
  - INSOMNIA [None]
  - PARAESTHESIA [None]
  - SOCIAL PROBLEM [None]
  - SUICIDAL IDEATION [None]
